FAERS Safety Report 23884398 (Version 1)
Quarter: 2024Q2

REPORT INFORMATION
  Report Type: Spontaneous
  Country: GB (occurrence: GB)
  Receive Date: 20240522
  Receipt Date: 20240522
  Transmission Date: 20240715
  Serious: Yes (Other)
  Sender: FDA-Public Use
  Company Number: None

PATIENT
  Age: 77 Year
  Sex: Female
  Weight: 70 kg

DRUGS (16)
  1. DOXYCYCLINE [Suspect]
     Active Substance: DOXYCYCLINE\DOXYCYCLINE HYCLATE
     Indication: Sinusitis
     Route: 065
     Dates: start: 20240212, end: 20240217
  2. THEICAL-D3 [Concomitant]
     Dates: start: 20230201
  3. NYSTATIN [Concomitant]
     Active Substance: NYSTATIN
     Dates: start: 20240312, end: 20240319
  4. HYDROMOL EMOLLIENT [Concomitant]
     Dosage: USE AS DIRECTED
     Dates: start: 20230201
  5. CANDESARTAN [Concomitant]
     Active Substance: CANDESARTAN
     Dates: start: 20231123
  6. DERMOL [Concomitant]
     Active Substance: BENZALKONIUM CHLORIDE\CHLORHEXIDINE HYDROCHLORIDE\ISOPROPYL MYRISTATE\PARAFFIN
     Dosage: USE AS DIRECTED
     Dates: start: 20230201
  7. FOLIC ACID [Concomitant]
     Active Substance: FOLIC ACID
     Dates: start: 20240305
  8. VENTOLIN [Concomitant]
     Active Substance: ALBUTEROL SULFATE
     Dosage: TIME INTERVAL: AS NECESSARY: TWO PUFFS FOUR TIMES A DAY AS REQUIRED
     Dates: start: 20230201
  9. BENDROFLUMETHIAZIDE [Concomitant]
     Active Substance: BENDROFLUMETHIAZIDE
     Dosage: IN THE MORNING
     Dates: start: 20230201
  10. SERETIDE [Concomitant]
     Active Substance: FLUTICASONE PROPIONATE\SALMETEROL XINAFOATE
     Dates: start: 20230201
  11. BETAMETHASONE VALERATE [Concomitant]
     Active Substance: BETAMETHASONE VALERATE
     Dosage: AS DIRECTED BY DERMATOLOGY
     Dates: start: 20240504
  12. MOMETASONE [Concomitant]
     Active Substance: MOMETASONE
     Dosage: 2 PUFFS EACH NOSTRIL
     Dates: start: 20230201
  13. ALENDRONIC ACID [Concomitant]
     Active Substance: ALENDRONIC ACID
     Dates: start: 20231228
  14. TETRACYCLINE [Suspect]
     Active Substance: TETRACYCLINE
     Route: 065
     Dates: start: 20240507
  15. LANSOPRAZOLE [Concomitant]
     Active Substance: LANSOPRAZOLE
     Dates: start: 20230201
  16. CLARITHROMYCIN [Concomitant]
     Active Substance: CLARITHROMYCIN
     Dosage: TIME INTERVAL: 0.08333333 HOURS
     Dates: start: 20240403, end: 20240410

REACTIONS (3)
  - Intracranial pressure increased [Recovering/Resolving]
  - Optic neuritis [Unknown]
  - Vision blurred [Unknown]

NARRATIVE: CASE EVENT DATE: 20240212
